FAERS Safety Report 7197786-2 (Version None)
Quarter: 2010Q4

REPORT INFORMATION
  Report Type: 
  Country: None (occurrence: None)
  Receive Date: 20101214
  Receipt Date: 20101203
  Transmission Date: 20110411
  Serious: Yes (Other)
  Sender: FDA-Public Use
  Company Number: 2010SP063235

PATIENT
  Age: 30 Year
  Sex: Female
  Weight: 90.2658 kg

DRUGS (1)
  1. IMPLANON [Suspect]
     Indication: CONTRACEPTION
     Dates: start: 20090723

REACTIONS (2)
  - OVARIAN CYST RUPTURED [None]
  - PAIN IN EXTREMITY [None]
